FAERS Safety Report 5160992-2 (Version None)
Quarter: 2006Q4

REPORT INFORMATION
  Report Type: 
  Country: None (occurrence: None)
  Receive Date: 20061130
  Receipt Date: 20060921
  Transmission Date: 20070319
  Serious: No
  Sender: FDA-Public Use
  Company Number: US-BRISTOL-MYERS SQUIBB COMPANY-13517669

PATIENT
  Age: 68 Year
  Sex: Female
  Weight: 82 kg

DRUGS (5)
  1. AVALIDE [Suspect]
     Indication: HYPERTENSION
     Route: 048
  2. DIOVAN [Suspect]
     Indication: HYPERTENSION
     Dates: start: 20060725
  3. TOPROL-XL [Concomitant]
     Dosage: 300/12.5 MG
  4. VYTORIN [Concomitant]
  5. KLOR-CON [Concomitant]

REACTIONS (1)
  - PRURITUS [None]
